FAERS Safety Report 10574694 (Version 2)
Quarter: 2015Q1

REPORT INFORMATION
  Report Type: Spontaneous
  Country: BR (occurrence: BR)
  Receive Date: 20141110
  Receipt Date: 20150112
  Transmission Date: 20150720
  Serious: Yes (Other)
  Sender: FDA-Public Use
  Company Number: BR-PFIZER INC-2014306262

PATIENT
  Age: 71 Year
  Sex: Female
  Weight: 71 kg

DRUGS (7)
  1. AZOPT [Concomitant]
     Active Substance: BRINZOLAMIDE
     Indication: GLAUCOMA
     Dosage: 1 DROP 2X/DAY IN RIGHT EYE
     Dates: start: 2009
  2. METFORMIN [Concomitant]
     Active Substance: METFORMIN HYDROCHLORIDE
     Dosage: UNK, 3X/DAY
     Dates: start: 2005
  3. SPIRONOLACTONE. [Concomitant]
     Active Substance: SPIRONOLACTONE
  4. ROSUVASTATIN [Concomitant]
     Active Substance: ROSUVASTATIN
     Dosage: UNK
     Dates: start: 2012
  5. ATACAND [Concomitant]
     Active Substance: CANDESARTAN CILEXETIL
  6. XALATAN [Suspect]
     Active Substance: LATANOPROST
     Indication: GLAUCOMA
     Dosage: 1 DROP IN EACH EYE (3 ?G), 1X/DAY
     Route: 047
     Dates: end: 201409
  7. FORXIGA [Concomitant]
     Active Substance: DAPAGLIFLOZIN
     Dosage: UNK
     Dates: start: 2014

REACTIONS (2)
  - Cataract [Recovered/Resolved]
  - Glaucoma [Recovered/Resolved]
